FAERS Safety Report 5066773-2 (Version None)
Quarter: 2006Q3

REPORT INFORMATION
  Report Type: 
  Country: None (occurrence: None)
  Receive Date: 20060710
  Receipt Date: 20051115
  Transmission Date: 20061208
  Serious: Yes (Other)
  Sender: FDA-Public Use
  Company Number: US-2005-020858

PATIENT
  Age: 62 Year
  Sex: Female

DRUGS (5)
  1. ULTRAVIST 300 [Suspect]
     Indication: COMPUTERISED TOMOGRAM
     Dosage: 100 ML, 1 DOSE, INTRAVENOUS
     Route: 042
     Dates: start: 20051006, end: 20051006
  2. READI-CAT(BARIUM SULFATE) [Suspect]
     Indication: COMPUTERISED TOMOGRAM
     Dosage: 900 ML, ORAL
     Route: 048
     Dates: end: 20051006
  3. LEVOXYL [Concomitant]
  4. PROZAC [Concomitant]
  5. SINGULAIR [Concomitant]

REACTIONS (8)
  - ABDOMINAL PAIN [None]
  - DIARRHOEA [None]
  - DYSGEUSIA [None]
  - FEELING HOT [None]
  - FLATULENCE [None]
  - HEADACHE [None]
  - MALAISE [None]
  - URTICARIA LOCALISED [None]
